FAERS Safety Report 16576593 (Version 1)
Quarter: 2019Q3

REPORT INFORMATION
  Report Type: Spontaneous
  Country: CA (occurrence: CA)
  Receive Date: 20190716
  Receipt Date: 20190716
  Transmission Date: 20191004
  Serious: Yes (Other)
  Sender: FDA-Public Use
  Company Number: CA-AUROBINDO-AUR-APL-2019-039429

PATIENT

DRUGS (1)
  1. MOXIFLOXACIN. [Suspect]
     Active Substance: MOXIFLOXACIN
     Indication: CHEST PAIN
     Dosage: 400 MILLIGRAM, ONCE A DAY
     Route: 048

REACTIONS (4)
  - Paraesthesia [Unknown]
  - Drug ineffective [Unknown]
  - Chest pain [Unknown]
  - Dyspnoea [Unknown]
